FAERS Safety Report 24554703 (Version 1)
Quarter: 2024Q4

REPORT INFORMATION
  Report Type: Report from Study
  Country: MX (occurrence: MX)
  Receive Date: 20241028
  Receipt Date: 20241028
  Transmission Date: 20250114
  Serious: Yes (Death, Other)
  Sender: ROCHE
  Company Number: MX-ROCHE-10000116038

PATIENT
  Age: 63 Year
  Sex: Female
  Weight: 45 kg

DRUGS (1)
  1. KADCYLA [Suspect]
     Active Substance: ADO-TRASTUZUMAB EMTANSINE
     Indication: Breast cancer metastatic
     Route: 042
     Dates: start: 20220207, end: 20241004

REACTIONS (15)
  - Haemorrhagic stroke [Fatal]
  - Seizure [Unknown]
  - Platelet count decreased [Unknown]
  - Hypotension [Unknown]
  - Vascular rupture [Unknown]
  - Nausea [Not Recovered/Not Resolved]
  - Pain [Not Recovered/Not Resolved]
  - Constipation [Unknown]
  - Decreased appetite [Unknown]
  - Immunosuppression [Unknown]
  - Vascular fragility [Unknown]
  - Oedema [Unknown]
  - Cerebral haematoma [Fatal]
  - Pain in extremity [Not Recovered/Not Resolved]
  - Brain neoplasm [Unknown]

NARRATIVE: CASE EVENT DATE: 20220207
